FAERS Safety Report 7083704-4 (Version None)
Quarter: 2010Q4

REPORT INFORMATION
  Report Type: 
  Country: None (occurrence: None)
  Receive Date: 20101025
  Receipt Date: 20101015
  Transmission Date: 20110411
  Serious: No
  Sender: FDA-Public Use
  Company Number: 2007SP003684

PATIENT
  Age: 45 Year
  Sex: Male
  Weight: 70 kg

DRUGS (14)
  1. TEMODAL [Suspect]
     Indication: ASTROCYTOMA
     Dosage: SEE IMAGE
     Route: 048
     Dates: start: 20060921, end: 20061101
  2. TEMODAL [Suspect]
     Indication: ASTROCYTOMA
     Dosage: SEE IMAGE
     Route: 048
     Dates: start: 20061201, end: 20061205
  3. TEMODAL [Suspect]
     Indication: ASTROCYTOMA
     Dosage: SEE IMAGE
     Route: 048
     Dates: start: 20061229, end: 20070102
  4. TEMODAL [Suspect]
     Indication: ASTROCYTOMA
     Dosage: SEE IMAGE
     Route: 048
     Dates: start: 20070122, end: 20070224
  5. TEMODAL [Suspect]
     Indication: ASTROCYTOMA
     Dosage: SEE IMAGE
     Route: 048
     Dates: start: 20070220, end: 20070224
  6. TEMODAL [Suspect]
     Indication: ASTROCYTOMA
     Dosage: SEE IMAGE
     Route: 048
     Dates: start: 20070327, end: 20070331
  7. TEMODAL [Suspect]
     Indication: ASTROCYTOMA
     Dosage: SEE IMAGE
     Route: 048
     Dates: start: 20070424, end: 20070428
  8. INTERFERON [Suspect]
     Indication: ANAPLASTIC ASTROCYTOMA
     Dates: start: 20060929, end: 20061102
  9. SELOVASE [Concomitant]
  10. ALEVIATIN [Concomitant]
  11. EXCEGRAN [Concomitant]
  12. TAMSULOSIN HCL [Concomitant]
  13. INDOMETHACIN [Concomitant]
  14. RINDERON-VG [Concomitant]

REACTIONS (1)
  - PNEUMONIA [None]
